FAERS Safety Report 10666586 (Version 3)
Quarter: 2015Q1

REPORT INFORMATION
  Report Type: Report from Study
  Country: US (occurrence: US)
  Receive Date: 20141221
  Receipt Date: 20150122
  Transmission Date: 20150720
  Serious: Yes (Hospitalization, Other)
  Sender: FDA-Public Use
  Company Number: US-MYLANLABS-2014SP002234

PATIENT

DRUGS (22)
  1. CYTARABINE. [Suspect]
     Active Substance: CYTARABINE
     Route: 042
     Dates: start: 20140403, end: 20140410
  2. DAUNORUBICIN [Suspect]
     Active Substance: DAUNORUBICIN
     Indication: ACUTE MYELOID LEUKAEMIA
     Route: 040
     Dates: start: 20140403, end: 20140405
  3. ALTEPLASE [Concomitant]
     Active Substance: ALTEPLASE
     Indication: PROPHYLAXIS
     Dosage: UNK
     Dates: start: 20140411
  4. ONDANSETRON [Concomitant]
     Active Substance: ONDANSETRON
     Indication: PROPHYLAXIS OF NAUSEA AND VOMITING
     Dosage: UNK
     Dates: start: 20140410
  5. PANTOPRAZOLE [Concomitant]
     Active Substance: PANTOPRAZOLE SODIUM
     Indication: NAUSEA
  6. ALLOPURINOL. [Concomitant]
     Active Substance: ALLOPURINOL
     Indication: HYPERURICAEMIA
     Dates: start: 20140403, end: 20140406
  7. LORAZEPAM. [Concomitant]
     Active Substance: LORAZEPAM
     Indication: NAUSEA
     Dates: start: 20140407, end: 20140408
  8. LEVOFLOXACIN. [Concomitant]
     Active Substance: LEVOFLOXACIN
     Indication: ANTIBIOTIC PROPHYLAXIS
     Dosage: UNK
     Dates: start: 20140317
  9. ACETAMINOPHEN. [Concomitant]
     Active Substance: ACETAMINOPHEN
     Indication: NECK PAIN
     Dates: start: 20140408, end: 20140409
  10. ACYCLOVIR                          /00587301/ [Concomitant]
     Active Substance: ACYCLOVIR
     Indication: PROPHYLAXIS
     Dosage: UNK
     Dates: start: 20140317
  11. MICAFUNGIN [Concomitant]
     Active Substance: MICAFUNGIN
     Dates: start: 20140403, end: 20140404
  12. METRONIDAZOLE. [Concomitant]
     Active Substance: METRONIDAZOLE
     Dates: start: 20140423, end: 20140502
  13. DAUNORUBICIN [Suspect]
     Active Substance: DAUNORUBICIN
     Route: 058
  14. PANTOPRAZOLE [Concomitant]
     Active Substance: PANTOPRAZOLE SODIUM
     Indication: GASTROOESOPHAGEAL REFLUX DISEASE
  15. MEROPENEM. [Concomitant]
     Active Substance: MEROPENEM
     Dates: start: 20140417, end: 20140427
  16. DECITABINE. [Suspect]
     Active Substance: DECITABINE
     Indication: PRODUCT USED FOR UNKNOWN INDICATION
     Route: 042
  17. ERGOCALCIFEROL. [Concomitant]
     Active Substance: ERGOCALCIFEROL
     Indication: VITAMIN D DEFICIENCY
     Dosage: UNK
     Dates: start: 201402
  18. PANTOPRAZOLE [Concomitant]
     Active Substance: PANTOPRAZOLE SODIUM
     Indication: CHEST PAIN
     Dosage: UNK
     Dates: start: 20140406
  19. ACETAMINOPHEN. [Concomitant]
     Active Substance: ACETAMINOPHEN
     Indication: HEADACHE
  20. MICAFUNGIN [Concomitant]
     Active Substance: MICAFUNGIN
     Indication: ANTIFUNGAL PROPHYLAXIS
     Dates: start: 20140424, end: 20140428
  21. VANCOMYCIN [Concomitant]
     Active Substance: VANCOMYCIN
     Dates: start: 20140417, end: 20140426
  22. POTASSIUM CHLORIDE. [Concomitant]
     Active Substance: POTASSIUM CHLORIDE
     Indication: HYPOKALAEMIA
     Dates: start: 20140405, end: 20140406

REACTIONS (14)
  - Rash [Recovering/Resolving]
  - Vomiting [Unknown]
  - Chills [Not Recovered/Not Resolved]
  - Atrial fibrillation [Recovered/Resolved]
  - Febrile neutropenia [Recovered/Resolved]
  - Palpitations [Recovered/Resolved]
  - Neutropenic colitis [Not Recovered/Not Resolved]
  - Abdominal pain [Recovered/Resolved]
  - Abdominal distension [Recovered/Resolved]
  - Panniculitis lobular [Recovering/Resolving]
  - Diarrhoea [Recovered/Resolved]
  - Hypotension [Unknown]
  - Nausea [Unknown]
  - Atrial flutter [Recovered/Resolved]

NARRATIVE: CASE EVENT DATE: 20140410
